FAERS Safety Report 4673995-9 (Version None)
Quarter: 2005Q2

REPORT INFORMATION
  Report Type: 
  Country: None (occurrence: None)
  Receive Date: 20050525
  Receipt Date: 20050506
  Transmission Date: 20051028
  Serious: Yes (Hospitalization)
  Sender: FDA-Public Use
  Company Number: 2005PL000031

PATIENT
  Age: 29 Year
  Sex: Male

DRUGS (2)
  1. AZATHIOPRINE [Suspect]
     Indication: COLITIS ULCERATIVE
     Dosage: 100 MG QD
  2. PREDNISOLONE [Concomitant]

REACTIONS (6)
  - HAEMOGLOBIN DECREASED [None]
  - HYPOXIA [None]
  - LEUKOPENIA [None]
  - PNEUMOCYSTIS JIROVECI PNEUMONIA [None]
  - PYREXIA [None]
  - THROMBOCYTOPENIA [None]
